FAERS Safety Report 9699074 (Version 1)
Quarter: 2013Q4

REPORT INFORMATION
  Report Type: Spontaneous
  Country: US (occurrence: None)
  Receive Date: 20131105
  Receipt Date: 20131105
  Transmission Date: 20140711
  Serious: Yes (Other)
  Sender: FDA-Public Use
  Company Number: 2013038664

PATIENT
  Age: 11 Year
  Sex: Female

DRUGS (2)
  1. IVIG (IMMUNE GLOBULIN INTRAVENOUS (HUMAN)) [Suspect]
     Indication: RASMUSSEN ENCEPHALITIS
  2. IVIG (IMMUNE GLOBULIN INTRAVENOUS (HUMAN)) [Suspect]
     Indication: MYASTHENIA GRAVIS

REACTIONS (5)
  - Off label use [None]
  - Muscular weakness [None]
  - Asthenia [None]
  - Dysphonia [None]
  - Thymus disorder [None]
